FAERS Safety Report 4625868-5 (Version None)
Quarter: 2005Q1

REPORT INFORMATION
  Report Type: 
  Country: None (occurrence: None)
  Receive Date: 20050330
  Receipt Date: 20050323
  Transmission Date: 20050727
  Serious: Yes (Other)
  Sender: FDA-Public Use
  Company Number: 200510143BVD

PATIENT
  Age: 80 Year
  Sex: Male
  Weight: 60 kg

DRUGS (6)
  1. AVELOX [Suspect]
     Indication: INFECTION
     Dosage: 400 MG, QD, ORAL
     Route: 048
     Dates: start: 20041028, end: 20041102
  2. AVELOX [Suspect]
     Indication: INFECTION
     Dosage: 400 MG, TOTAL DAILY, INTRAVENOUS
     Route: 042
     Dates: start: 20041027
  3. RIFA [Concomitant]
  4. ISOZID [Concomitant]
  5. ETHAMBUTOL HCL [Concomitant]
  6. ALNA [Concomitant]

REACTIONS (5)
  - CEREBRAL DISORDER [None]
  - CONDITION AGGRAVATED [None]
  - DYSPHAGIA [None]
  - SOMNOLENCE [None]
  - VASCULAR ENCEPHALOPATHY [None]
